FAERS Safety Report 21337937 (Version 5)
Quarter: 2022Q4

REPORT INFORMATION
  Report Type: Report from Study
  Country: US (occurrence: US)
  Receive Date: 20220915
  Receipt Date: 20221230
  Transmission Date: 20230113
  Serious: Yes (Other)
  Sender: FDA-Public Use
  Company Number: US-NOVARTISPH-NVSC2022US205026

PATIENT
  Sex: Female

DRUGS (2)
  1. ZIEXTENZO [Suspect]
     Active Substance: PEGFILGRASTIM-BMEZ
     Indication: Product used for unknown indication
     Dosage: 6 MG, Q3W
     Route: 058
     Dates: start: 20220908
  2. ZARXIO [Suspect]
     Active Substance: FILGRASTIM-SNDZ
     Indication: Product used for unknown indication
     Dosage: UNK
     Route: 065

REACTIONS (4)
  - Angina pectoris [Unknown]
  - Full blood count decreased [Unknown]
  - Pain [Recovered/Resolved]
  - Adverse drug reaction [Unknown]
